FAERS Safety Report 7302361-2 (Version None)
Quarter: 2011Q1

REPORT INFORMATION
  Report Type: 
  Country: None (occurrence: None)
  Receive Date: 20110218
  Receipt Date: 20110214
  Transmission Date: 20110831
  Serious: Yes (Death)
  Sender: FDA-Public Use
  Company Number: CA-ABBOTT-09P-028-0608473-00

PATIENT
  Sex: Female
  Weight: 83.5 kg

DRUGS (6)
  1. PERCOCET [Concomitant]
     Indication: RHEUMATOID ARTHRITIS
     Dates: start: 20080716, end: 20091001
  2. NAPROSYN [Concomitant]
     Indication: RHEUMATOID ARTHRITIS
     Dates: start: 20070419, end: 20091001
  3. ETOPOSIDE [Concomitant]
     Indication: METASTATIC NEOPLASM
     Route: 048
     Dates: start: 20091019
  4. TYLENOL (CAPLET) [Concomitant]
     Indication: RHEUMATOID ARTHRITIS
     Dates: start: 20070419, end: 20091001
  5. METHOTREXATE [Concomitant]
     Indication: PRODUCT USED FOR UNKNOWN INDICATION
  6. HUMIRA [Suspect]
     Indication: RHEUMATOID ARTHRITIS
     Route: 058
     Dates: start: 20071001, end: 20091001

REACTIONS (1)
  - PANCREATIC CARCINOMA METASTATIC [None]
